FAERS Safety Report 18937947 (Version 4)
Quarter: 2021Q3

REPORT INFORMATION
  Report Type: Spontaneous
  Country: IT (occurrence: IT)
  Receive Date: 20210224
  Receipt Date: 20210902
  Transmission Date: 20211014
  Serious: Yes (Other)
  Sender: FDA-Public Use
  Company Number: IT-MYLANLABS-2020M1099884

PATIENT
  Sex: Male

DRUGS (4)
  1. EDOXABAN [Interacting]
     Active Substance: EDOXABAN TOSYLATE
     Indication: THROMBOSIS PROPHYLAXIS
     Dosage: 30 MILLIGRAM, QD, RESUMED AT A REDUCED DOSE
     Route: 048
  2. EDOXABAN [Interacting]
     Active Substance: EDOXABAN TOSYLATE
     Dosage: UNK UNK, QD
     Route: 048
  3. EDOXABAN [Interacting]
     Active Substance: EDOXABAN TOSYLATE
     Indication: CHRONIC MYELOID LEUKAEMIA
     Dosage: 30 MILLIGRAM, QD, RESUMED AT A REDUCED DOSE
     Route: 048
  4. IMATINIB. [Suspect]
     Active Substance: IMATINIB MESYLATE
     Indication: CHRONIC MYELOID LEUKAEMIA
     Dosage: 400 MILLIGRAM, QD
     Route: 065

REACTIONS (3)
  - Renal failure [Unknown]
  - Drug interaction [Unknown]
  - Injection site haematoma [Unknown]
